FAERS Safety Report 5724289-1 (Version None)
Quarter: 2008Q2

REPORT INFORMATION
  Report Type: 
  Country: None (occurrence: None)
  Receive Date: 20080428
  Receipt Date: 20080416
  Transmission Date: 20081010
  Serious: Yes (Other)
  Sender: FDA-Public Use
  Company Number: A-CH2008-19738

PATIENT
  Age: 45 Year
  Sex: Male

DRUGS (12)
  1. TRACLEER [Suspect]
     Dosage: 62.5 MG, BID, ORAL; 125 MG, BID, ORAL
     Route: 048
     Dates: start: 20071022, end: 20071202
  2. TRACLEER [Suspect]
     Dosage: 62.5 MG, BID, ORAL; 125 MG, BID, ORAL
     Route: 048
     Dates: start: 20071203
  3. OXYGEN (OXYGEN) [Concomitant]
  4. EMCONCOR (BISOPROLOL) [Concomitant]
  5. ALDACTONE [Concomitant]
  6. OMEPRAZOLE [Concomitant]
  7. FUROSEMIDE [Concomitant]
  8. LISINOPRIL [Concomitant]
  9. EPLERENONE [Concomitant]
  10. PREVENCOR (ATORVASTATIN CALCIUM) [Concomitant]
  11. MINURIN (DESMOPRESSIN) [Concomitant]
  12. SERETIDE (SALMETEROL, FLUTICASONE PROPIONATE) [Concomitant]

REACTIONS (1)
  - RENAL FAILURE [None]
